FAERS Safety Report 12841216 (Version 2)
Quarter: 2017Q1

REPORT INFORMATION
  Report Type: Spontaneous
  Country: US (occurrence: US)
  Receive Date: 20161012
  Receipt Date: 20170105
  Transmission Date: 20170428
  Serious: No
  Sender: FDA-Public Use
  Company Number: US-ALLERGAN-1669802US

PATIENT
  Age: 82 Year
  Sex: Male
  Weight: 68.93 kg

DRUGS (2)
  1. METRONIDAZOLE UNK [Suspect]
     Active Substance: METRONIDAZOLE
     Indication: PROSTATE CANCER
     Dosage: 4 PILLS, QPM
     Route: 065
     Dates: start: 20160711
  2. METRONIDAZOLE UNK [Suspect]
     Active Substance: METRONIDAZOLE
     Indication: ANTIBIOTIC THERAPY
     Dosage: UNK, UNKNOWN
     Route: 065
     Dates: start: 20160402

REACTIONS (4)
  - Insomnia [Unknown]
  - Diverticulitis [Unknown]
  - Prostatic specific antigen increased [Unknown]
  - Flatulence [Unknown]

NARRATIVE: CASE EVENT DATE: 20160615
